FAERS Safety Report 11703627 (Version 2)
Quarter: 2015Q4

REPORT INFORMATION
  Report Type: Report from Study
  Country: US (occurrence: US)
  Receive Date: 20151106
  Receipt Date: 20151124
  Transmission Date: 20160304
  Serious: No
  Sender: FDA-Public Use
  Company Number: US-AMGEN-USASP2015115552

PATIENT
  Age: 30 Year
  Sex: Female

DRUGS (2)
  1. ENBREL [Suspect]
     Active Substance: ETANERCEPT
     Indication: PSORIASIS
  2. ENBREL [Suspect]
     Active Substance: ETANERCEPT
     Indication: PSORIATIC ARTHROPATHY
     Dosage: 50 MG, 2 TIMES/WK
     Route: 065
     Dates: start: 20150306

REACTIONS (11)
  - Overdose [Unknown]
  - Injection site nodule [Unknown]
  - Drug ineffective [Unknown]
  - Injection site pain [Unknown]
  - Injection site swelling [Unknown]
  - Condition aggravated [Unknown]
  - Underdose [Unknown]
  - Drug dose omission [Unknown]
  - Product quality issue [Unknown]
  - Macule [Unknown]
  - Device issue [Unknown]

NARRATIVE: CASE EVENT DATE: 2015
